FAERS Safety Report 11342907 (Version 3)
Quarter: 2016Q2

REPORT INFORMATION
  Report Type: Report from Study
  Country: US (occurrence: US)
  Receive Date: 20150805
  Receipt Date: 20160601
  Transmission Date: 20160815
  Serious: Yes (Other)
  Sender: FDA-Public Use
  Company Number: US-AMGEN-USASP2015072103

PATIENT
  Age: 72 Year
  Sex: Male
  Weight: 86.62 kg

DRUGS (10)
  1. NPLATE [Suspect]
     Active Substance: ROMIPLOSTIM
     Dosage: 680 MCG, UNK
     Route: 058
     Dates: start: 20160503
  2. CHRONULAC [Concomitant]
     Active Substance: LACTULOSE
     Indication: CONSTIPATION
     Dosage: 20 G/30 ML, TID
     Route: 048
  3. RAMIPRIL. [Concomitant]
     Active Substance: RAMIPRIL
     Dosage: 5 MG, UNK
     Route: 048
  4. GLUCOPHAGE [Concomitant]
     Active Substance: METFORMIN HYDROCHLORIDE
     Indication: DIABETES MELLITUS
     Dosage: 1000 MG, BID (WITH MEALS)
     Route: 048
  5. LIPITOR [Concomitant]
     Active Substance: ATORVASTATIN CALCIUM
     Dosage: 40 MG, QD
     Route: 048
  6. ELAVIL [Concomitant]
     Active Substance: AMITRIPTYLINE HYDROCHLORIDE
     Indication: DEPRESSION
     Dosage: 25 MG, QD (NIGHTLY)
     Route: 048
  7. GABAPENTIN ENACARBIL [Concomitant]
     Active Substance: GABAPENTIN ENACARBIL
     Indication: NEURALGIA
     Dosage: 600 MG, UNK
     Route: 048
  8. DIPHENHYDRAMINE HYDROCHLORIDE W/LIDOCAINE [Concomitant]
     Indication: APHTHOUS ULCER
     Dosage: 5 TO 10 ML, Q4H
     Route: 048
  9. NPLATE [Suspect]
     Active Substance: ROMIPLOSTIM
     Indication: IMMUNE THROMBOCYTOPENIC PURPURA
     Dosage: 6 MCG/KG, Q2WK
     Route: 065
     Dates: start: 2010
  10. TENORMIN [Concomitant]
     Active Substance: ATENOLOL
     Indication: HYPERTENSION
     Dosage: 25 MG, UNK
     Route: 048

REACTIONS (18)
  - Arthralgia [Not Recovered/Not Resolved]
  - White blood cell count increased [Unknown]
  - Ecchymosis [Unknown]
  - Fatigue [Unknown]
  - Blood glucose increased [Unknown]
  - Prostatic specific antigen increased [Unknown]
  - Intentional product misuse [Unknown]
  - Contusion [Unknown]
  - Nasopharyngitis [Unknown]
  - Myalgia [Recovered/Resolved]
  - Platelet count decreased [Unknown]
  - Joint swelling [Not Recovered/Not Resolved]
  - Red cell distribution width increased [Unknown]
  - Monocyte count increased [Unknown]
  - Pain in extremity [Recovered/Resolved]
  - Musculoskeletal pain [Recovered/Resolved]
  - Dry skin [Unknown]
  - Neutrophil count increased [Unknown]

NARRATIVE: CASE EVENT DATE: 2015
